FAERS Safety Report 9132906 (Version 1)
Quarter: 2013Q1

REPORT INFORMATION
  Report Type: Spontaneous
  Country: US (occurrence: US)
  Receive Date: 20130301
  Receipt Date: 20130301
  Transmission Date: 20140127
  Serious: Yes (Other)
  Sender: FDA-Public Use
  Company Number: CHPA2013US003537

PATIENT
  Age: 58 Year
  Sex: Male

DRUGS (5)
  1. 4 WAY UNKNOWN [Suspect]
     Indication: SINUS DISORDER
     Dosage: UNK, UNK
     Route: 045
     Dates: start: 2008
  2. ZOCOR [Concomitant]
     Dosage: UNK, UNK
  3. FOSINOPRIL [Concomitant]
     Route: 048
  4. AMLODIPINE BESYLATE [Concomitant]
  5. CRESTOR [Concomitant]

REACTIONS (3)
  - Dehydration [Recovered/Resolved]
  - Off label use [Unknown]
  - Expired drug administered [Unknown]
